FAERS Safety Report 6638146-X (Version None)
Quarter: 2010Q1

REPORT INFORMATION
  Report Type: 
  Country: None (occurrence: None)
  Receive Date: 20100315
  Receipt Date: 20100315
  Transmission Date: 20100710
  Serious: No
  Sender: FDA-Public Use
  Company Number: None

PATIENT

DRUGS (1)
  1. NAPROXEN [Suspect]
     Indication: PAIN
     Dosage: 250 BID PO
     Route: 048
     Dates: end: 20091201

REACTIONS (1)
  - BLOOD CREATININE INCREASED [None]
